FAERS Safety Report 9452316 (Version 2)
Quarter: 2013Q3

REPORT INFORMATION
  Report Type: Spontaneous
  Country: JP (occurrence: JP)
  Receive Date: 20130812
  Receipt Date: 20130820
  Transmission Date: 20140515
  Serious: Yes (Other)
  Sender: FDA-Public Use
  Company Number: JP-AMGEN-JPNSP2013055944

PATIENT
  Age: 29 Year
  Sex: Female

DRUGS (12)
  1. ARANESP [Suspect]
     Indication: ANAEMIA
     Dosage: UNK
     Route: 065
  2. METHYLPREDNISOLONE [Concomitant]
     Indication: GLOMERULONEPHRITIS
     Dosage: UNK
     Route: 065
     Dates: start: 2000
  3. METHYLPREDNISOLONE [Concomitant]
     Dosage: UNK
     Route: 065
     Dates: start: 2009
  4. PREDNISOLONE [Concomitant]
     Indication: GLOMERULONEPHRITIS
     Dosage: UNK
     Route: 048
     Dates: start: 2000
  5. PREDNISOLONE [Concomitant]
     Dosage: 6 MG, UNK
     Route: 048
     Dates: start: 2009
  6. PREDNISOLONE [Concomitant]
     Dosage: 30 MG, UNK
     Route: 065
     Dates: start: 2011
  7. PREDNISOLONE [Concomitant]
     Dosage: 20 MG, UNK
     Route: 065
  8. HEPARIN SODIUM [Concomitant]
     Indication: THROMBOSIS PROPHYLAXIS
     Dosage: UNK
     Route: 065
     Dates: start: 2011
  9. INSULIN [Concomitant]
     Indication: HYPERGLYCAEMIA
     Dosage: UNK
     Route: 065
     Dates: start: 2011
  10. FERROUS CITRATE [Concomitant]
     Indication: ANAEMIA
     Dosage: UNK
     Route: 048
     Dates: start: 2011
  11. LOSARTAN POTASSIUM [Concomitant]
     Indication: GLOMERULONEPHRITIS
     Dosage: UNK
     Route: 048
  12. WARFARIN POTASSIUM [Concomitant]
     Indication: GLOMERULONEPHRITIS
     Dosage: UNK
     Route: 048

REACTIONS (2)
  - Premature labour [Unknown]
  - Exposure during pregnancy [Unknown]
